FAERS Safety Report 9691200 (Version 3)
Quarter: 2013Q4

REPORT INFORMATION
  Report Type: Spontaneous
  Country: JP (occurrence: JP)
  Receive Date: 20131115
  Receipt Date: 20131223
  Transmission Date: 20140711
  Serious: Yes (Hospitalization)
  Sender: FDA-Public Use
  Company Number: JP-ABBVIE-13P-087-1169769-00

PATIENT
  Age: 30 Year
  Sex: Female

DRUGS (2)
  1. CLARITH [Suspect]
     Indication: PNEUMONIA MYCOPLASMAL
     Route: 048
  2. OXYTOCIN [Concomitant]
     Indication: INDUCED LABOUR

REACTIONS (1)
  - Haemoptysis [Unknown]
